FAERS Safety Report 24562877 (Version 1)
Quarter: 2024Q4

REPORT INFORMATION
  Report Type: Spontaneous
  Country: US (occurrence: US)
  Receive Date: 20241030
  Receipt Date: 20241030
  Transmission Date: 20250115
  Serious: Yes (Death, Other)
  Sender: Steriscience PTE
  Company Number: US-STERISCIENCE B.V.-2024-ST-001749

PATIENT
  Age: 7 Decade
  Sex: Female

DRUGS (5)
  1. MYCOPHENOLATE MOFETIL [Suspect]
     Active Substance: MYCOPHENOLATE MOFETIL
     Indication: Immune-mediated myocarditis
     Dosage: 1 GRAM, BID
     Route: 065
  2. METHYLPREDNISOLONE [Suspect]
     Active Substance: METHYLPREDNISOLONE
     Indication: Immune-mediated myocarditis
     Dosage: 1 MILLIGRAM/KILOGRAM, BID
     Route: 065
  3. DAVOCETICEPT [Concomitant]
     Active Substance: DAVOCETICEPT
     Indication: Colorectal adenocarcinoma
     Dosage: 0.1 MILLIGRAM/KILOGRAM, Q3W
     Route: 042
  4. PEMBROLIZUMAB [Concomitant]
     Active Substance: PEMBROLIZUMAB
     Indication: Colorectal adenocarcinoma
     Dosage: 400 MILLIGRAM, RECEIVED FOR EVERY 6 WEEKS
     Route: 042
  5. AMIODARONE [Concomitant]
     Active Substance: AMIODARONE
     Indication: Product used for unknown indication
     Dosage: UNK
     Route: 065

REACTIONS (1)
  - Drug ineffective for unapproved indication [Fatal]
